FAERS Safety Report 4422860-0 (Version None)
Quarter: 2004Q3

REPORT INFORMATION
  Report Type: 
  Country: None (occurrence: None)
  Receive Date: 20040804
  Receipt Date: 20040726
  Transmission Date: 20050211
  Serious: Yes (Death)
  Sender: FDA-Public Use
  Company Number: S04-USA-04389-01

PATIENT
  Age: 78 Year
  Sex: Male

DRUGS (8)
  1. NAMENDA [Suspect]
     Indication: DEMENTIA ALZHEIMER'S TYPE
     Dosage: 5 MG QD PO
     Route: 048
     Dates: start: 20031219, end: 20031221
  2. NAMENDA [Suspect]
     Indication: DEMENTIA ALZHEIMER'S TYPE
     Dosage: 5 MG QOD PO
     Route: 048
     Dates: start: 20031222, end: 20031229
  3. REMINYL [Concomitant]
  4. METOPROLOL [Concomitant]
  5. HYZAAR [Concomitant]
  6. PLENDIL [Concomitant]
  7. PAXIL [Concomitant]
  8. VITAMIN B COMPLEX CAP [Concomitant]

REACTIONS (3)
  - CEREBROVASCULAR ACCIDENT [None]
  - FEELING ABNORMAL [None]
  - MYOCARDIAL INFARCTION [None]
